FAERS Safety Report 5958889-0 (Version None)
Quarter: 2008Q4

REPORT INFORMATION
  Report Type: 
  Country: None (occurrence: None)
  Receive Date: 20081118
  Receipt Date: 20081104
  Transmission Date: 20090506
  Serious: Yes (Death)
  Sender: FDA-Public Use
  Company Number: 2008002695

PATIENT
  Age: 76 Year
  Sex: Male

DRUGS (12)
  1. ERLOTINIB(ERLOTINIB) (TABLET) (ERLOTINIB) [Suspect]
     Indication: HEPATIC NEOPLASM MALIGNANT
     Dosage: (50 MG, QD), ORAL
     Route: 048
  2. BEVACIZUMAB (INJECTION FOR INFUSION0 [Suspect]
     Dosage: (10 MG/KG, Q2W), INTRAVENOUS
     Route: 042
  3. MEGACE [Concomitant]
  4. DURAGESIC-100 [Concomitant]
  5. CARDIZEM [Concomitant]
  6. COUMADIN [Concomitant]
  7. HYDROCHLOROTHIAZIDE [Concomitant]
  8. LANOXIN [Concomitant]
  9. LOPRESSOR [Concomitant]
  10. COLACE (DOCUSATE SODIUM) [Concomitant]
  11. PROTONIX [Concomitant]
  12. PROPOXYPHENE (DEXTROPROPOXYPHENE) [Concomitant]

REACTIONS (7)
  - ATRIAL FIBRILLATION [None]
  - GENERAL PHYSICAL HEALTH DETERIORATION [None]
  - HEPATIC NEOPLASM MALIGNANT [None]
  - HYPOPHAGIA [None]
  - ILL-DEFINED DISORDER [None]
  - MALIGNANT NEOPLASM PROGRESSION [None]
  - PULMONARY EMBOLISM [None]
